FAERS Safety Report 5843179-7 (Version None)
Quarter: 2008Q3

REPORT INFORMATION
  Report Type: 
  Country: None (occurrence: None)
  Receive Date: 20080813
  Receipt Date: 20080731
  Transmission Date: 20090109
  Serious: Yes (Hospitalization)
  Sender: FDA-Public Use
  Company Number: PHBS2008US03112

PATIENT
  Age: 36 Year
  Sex: Male

DRUGS (2)
  1. IMATINIB MESYLATE [Suspect]
     Indication: CHRONIC MYELOID LEUKAEMIA
     Dosage: 400 MG, BID
     Route: 048
     Dates: start: 20070801
  2. IMATINIB MESYLATE [Suspect]
     Dosage: 400 MG/D
     Route: 048

REACTIONS (6)
  - ERYTHEMA [None]
  - FASCIITIS [None]
  - MYOSITIS [None]
  - OEDEMA PERIPHERAL [None]
  - PAIN IN EXTREMITY [None]
  - TENDERNESS [None]
